FAERS Safety Report 12910975 (Version 2)
Quarter: 2016Q4

REPORT INFORMATION
  Report Type: Spontaneous
  Country: US (occurrence: US)
  Receive Date: 20161104
  Receipt Date: 20161212
  Transmission Date: 20170207
  Serious: Yes (Hospitalization)
  Sender: FDA-Public Use
  Company Number: US-JNJFOC-20161011664

PATIENT
  Age: 48 Year
  Sex: Female
  Weight: 95.71 kg

DRUGS (1)
  1. XARELTO [Suspect]
     Active Substance: RIVAROXABAN
     Indication: DEEP VEIN THROMBOSIS
     Dosage: DOSE: 15 MG- 20 MG
     Route: 048
     Dates: start: 20150418, end: 20151208

REACTIONS (2)
  - Menometrorrhagia [Unknown]
  - Haematuria [Unknown]

NARRATIVE: CASE EVENT DATE: 201504
